FAERS Safety Report 21921399 (Version 1)
Quarter: 2023Q1

REPORT INFORMATION
  Report Type: Spontaneous
  Country: AU (occurrence: AU)
  Receive Date: 20230127
  Receipt Date: 20230127
  Transmission Date: 20230418
  Serious: Yes (Hospitalization)
  Sender: FDA-Public Use
  Company Number: AU-BAYER-2023P004628

PATIENT
  Age: 57 Year
  Sex: Male

DRUGS (1)
  1. ADEMPAS [Suspect]
     Active Substance: RIOCIGUAT
     Dosage: 2 MG, TID
     Route: 048

REACTIONS (3)
  - Fall [None]
  - Peripheral nerve injury [None]
  - Tissue injury [None]

NARRATIVE: CASE EVENT DATE: 20221223
